FAERS Safety Report 22267022 (Version 1)
Quarter: 2023Q2

REPORT INFORMATION
  Report Type: Spontaneous
  Country: GB (occurrence: GB)
  Receive Date: 20230428
  Receipt Date: 20230428
  Transmission Date: 20230721
  Serious: Yes (Other)
  Sender: FDA-Public Use
  Company Number: None

PATIENT
  Age: 56 Year
  Sex: Female
  Weight: 54 kg

DRUGS (5)
  1. NAPROXEN [Suspect]
     Active Substance: NAPROXEN
     Indication: Ill-defined disorder
     Dosage: TEVA UK
     Route: 065
     Dates: start: 20230420
  2. BISOPROLOL [Concomitant]
     Active Substance: BISOPROLOL
     Indication: Ill-defined disorder
     Dosage: 1 DOSAGE FORMS DAILY;
     Dates: start: 20220114
  3. CONJUGATED OESTROGENS EQUINE [Concomitant]
     Indication: Ill-defined disorder
     Dosage: USE AS DIRECTED
     Dates: start: 20220114
  4. ESTRIOL [Concomitant]
     Active Substance: ESTRIOL
     Indication: Ill-defined disorder
     Dosage: APPLY   TWICE WEEKLY
     Dates: start: 20220114, end: 20230420
  5. INVITA-D3 [Concomitant]
     Indication: Ill-defined disorder
     Dosage: ONE CAPSULE ON THE SAME DAY EACH WEEK FOR 6 WEEKS.
     Dates: start: 20230314

REACTIONS (2)
  - Swollen tongue [Recovered/Resolved]
  - Rash papular [Recovered/Resolved]

NARRATIVE: CASE EVENT DATE: 20230420
